FAERS Safety Report 24117178 (Version 1)
Quarter: 2024Q3

REPORT INFORMATION
  Report Type: Spontaneous
  Country: FR (occurrence: FR)
  Receive Date: 20240722
  Receipt Date: 20240722
  Transmission Date: 20241017
  Serious: Yes (Other)
  Sender: TEVA
  Company Number: None

PATIENT
  Age: 69 Year
  Sex: Male
  Weight: 85 kg

DRUGS (2)
  1. CIPROFLOXACIN HYDROCHLORIDE [Suspect]
     Active Substance: CIPROFLOXACIN HYDROCHLORIDE
     Indication: Lung disorder
     Route: 048
     Dates: start: 20231008, end: 20231013
  2. SPIRAMYCIN [Suspect]
     Active Substance: SPIRAMYCIN
     Indication: Lung disorder
     Route: 042
     Dates: start: 20231008

REACTIONS (2)
  - Cholestasis [Not Recovered/Not Resolved]
  - Bilirubin conjugated [Not Recovered/Not Resolved]

NARRATIVE: CASE EVENT DATE: 20231013
